FAERS Safety Report 24677894 (Version 1)
Quarter: 2024Q4

REPORT INFORMATION
  Report Type: Spontaneous
  Country: ES (occurrence: ES)
  Receive Date: 20241129
  Receipt Date: 20241129
  Transmission Date: 20250114
  Serious: Yes (Other)
  Sender: ROCHE
  Company Number: None

PATIENT
  Age: 66 Year
  Sex: Male

DRUGS (3)
  1. BEVACIZUMAB [Suspect]
     Active Substance: BEVACIZUMAB
     Indication: Hereditary haemorrhagic telangiectasia
     Route: 042
     Dates: start: 20190510, end: 20240202
  2. FERINJECT 50 mg/ml DISPERSION INYECTABLE Y PARA PERFUSION [Concomitant]
     Indication: Anaemia
     Route: 042
     Dates: start: 20190206, end: 20240426
  3. AMCHAFIBRIN 500 MG COMPRIMIDOS RECUBIERTOS CON PELICULA [Concomitant]
     Indication: Hereditary haemorrhagic telangiectasia
     Route: 048
     Dates: start: 202105

REACTIONS (1)
  - Polyneuropathy [Not Recovered/Not Resolved]

NARRATIVE: CASE EVENT DATE: 20210101
